FAERS Safety Report 4937101-5 (Version None)
Quarter: 2006Q1

REPORT INFORMATION
  Report Type: 
  Country: None (occurrence: None)
  Receive Date: 20060307
  Receipt Date: 20060307
  Transmission Date: 20060701
  Serious: Yes (Hospitalization)
  Sender: FDA-Public Use
  Company Number: None

PATIENT
  Age: 82 Year
  Sex: Female
  Weight: 69 kg

DRUGS (3)
  1. ASPIRIN [Suspect]
     Indication: CARDIOVASCULAR EVENT PROPHYLAXIS
     Dosage: 81MG 3X1WK
  2. IBUPROFEN [Suspect]
     Indication: ARTHRALGIA
     Dosage: 600MG QD
  3. IBUPROFEN [Suspect]
     Indication: OSTEOARTHRITIS
     Dosage: 600MG QD

REACTIONS (5)
  - ABDOMINAL DISTENSION [None]
  - BOWEL SOUNDS ABNORMAL [None]
  - EROSIVE OESOPHAGITIS [None]
  - HAEMATEMESIS [None]
  - VOMITING [None]
